FAERS Safety Report 4770204-7 (Version None)
Quarter: 2005Q3

REPORT INFORMATION
  Report Type: 
  Country: None (occurrence: None)
  Receive Date: 20050915
  Receipt Date: 20050905
  Transmission Date: 20060218
  Serious: Yes (Other)
  Sender: FDA-Public Use
  Company Number: DE-JNJFOC-20050901168

PATIENT
  Sex: Female

DRUGS (6)
  1. RISPERDAL [Suspect]
     Indication: AGITATION
  2. REMINYL [Suspect]
  3. REMINYL [Suspect]
  4. REMINYL [Suspect]
     Indication: DEMENTIA
  5. METFORMIN [Concomitant]
  6. LANTAREL [Concomitant]

REACTIONS (2)
  - MUSCLE RIGIDITY [None]
  - TREMOR [None]
